FAERS Safety Report 6971687-4 (Version None)
Quarter: 2010Q3

REPORT INFORMATION
  Report Type: 
  Country: None (occurrence: None)
  Receive Date: 20100908
  Receipt Date: 20090729
  Transmission Date: 20110219
  Serious: Yes (Death)
  Sender: FDA-Public Use
  Company Number: US-PFIZER INC-2009248541

PATIENT
  Sex: Male

DRUGS (3)
  1. NARDIL [Suspect]
     Indication: DEPRESSION
  2. NARDIL [Suspect]
     Indication: ANXIETY
  3. NARDIL [Suspect]
     Indication: PANIC ATTACK

REACTIONS (2)
  - COMPLETED SUICIDE [None]
  - INTENTIONAL OVERDOSE [None]
